FAERS Safety Report 4830694-8 (Version None)
Quarter: 2005Q4

REPORT INFORMATION
  Report Type: 
  Country: None (occurrence: None)
  Receive Date: 20051114
  Receipt Date: 20051031
  Transmission Date: 20060501
  Serious: Yes (Hospitalization, Other)
  Sender: FDA-Public Use
  Company Number: ITWYE098631OCT05

PATIENT
  Age: 27 Year
  Sex: Male

DRUGS (3)
  1. GEMTUZUMAB OZOGAMICIN (GEMTUZUMAB OZOGAMICIN, INJECTION) LOT NO.:2005P [Suspect]
     Indication: ACUTE PROMYELOCYTIC LEUKAEMIA
     Dosage: 6 MG/M^2  1X PER 1 MTH, INTRAVENOUS
     Route: 042
     Dates: start: 20051011, end: 20051011
  2. VORICONAZOLE 9VORICONAZOLE) [Concomitant]
  3. CEFIXIME (CEFIXIME) [Concomitant]

REACTIONS (3)
  - CELLULITIS [None]
  - FEBRILE NEUTROPENIA [None]
  - WHITE BLOOD CELL COUNT DECREASED [None]
